FAERS Safety Report 7068664-4 (Version None)
Quarter: 2010Q4

REPORT INFORMATION
  Report Type: 
  Country: None (occurrence: None)
  Receive Date: 20101028
  Receipt Date: 20101025
  Transmission Date: 20110411
  Serious: Yes (Hospitalization, Other)
  Sender: FDA-Public Use
  Company Number: US-CEPHALON-US021447

PATIENT
  Sex: Female
  Weight: 191 kg

DRUGS (14)
  1. PROVIGIL [Suspect]
     Indication: FATIGUE
     Route: 048
     Dates: start: 20060801, end: 20060915
  2. PROVIGIL [Suspect]
     Indication: COGNITIVE DISORDER
  3. RISPERDAL [Suspect]
     Indication: DEPRESSION
     Route: 048
     Dates: start: 20020101, end: 20060915
  4. ZYPREXA [Suspect]
     Route: 065
  5. EFFEXOR XR [Concomitant]
     Indication: DEPRESSION
     Route: 048
     Dates: start: 20010101, end: 20070101
  6. LITHIUM [Concomitant]
     Indication: AFFECTIVE DISORDER
     Route: 048
     Dates: start: 20050401, end: 20070101
  7. PRILOSEC [Concomitant]
     Indication: GASTROOESOPHAGEAL REFLUX DISEASE
     Route: 048
     Dates: start: 19970101, end: 20070101
  8. ENABLEX [Concomitant]
     Indication: URINARY INCONTINENCE
     Route: 048
     Dates: start: 20060101, end: 20070101
  9. LIPITOR [Concomitant]
     Indication: BLOOD CHOLESTEROL INCREASED
     Route: 048
     Dates: start: 20060101, end: 20070101
  10. TRIAMTERENE [Concomitant]
     Indication: HYPERTENSION
     Dosage: 37.5/25MG QD
     Route: 048
     Dates: start: 20060101, end: 20070101
  11. TRIAMTERENE [Concomitant]
     Indication: DIURETIC THERAPY
  12. MIRAPEX [Concomitant]
     Indication: RESTLESS LEGS SYNDROME
     Route: 048
     Dates: start: 20030101, end: 20070101
  13. POTASSIUM CHLORIDE [Concomitant]
     Indication: SUPPLEMENTATION THERAPY
     Route: 048
     Dates: start: 20050101, end: 20070101
  14. COUMADIN [Concomitant]
     Indication: THROMBOSIS PROPHYLAXIS
     Route: 048
     Dates: start: 20040501, end: 20070101

REACTIONS (8)
  - ANAEMIA [None]
  - DYSPHAGIA [None]
  - IMPAIRED GASTRIC EMPTYING [None]
  - MIGRAINE WITH AURA [None]
  - ORAL DISORDER [None]
  - STOMATITIS [None]
  - TARDIVE DYSKINESIA [None]
  - TREMOR [None]
